FAERS Safety Report 6412045-0 (Version None)
Quarter: 2009Q4

REPORT INFORMATION
  Report Type: 
  Country: None (occurrence: None)
  Receive Date: 20091023
  Receipt Date: 20091005
  Transmission Date: 20100525
  Serious: Yes (Other)
  Sender: FDA-Public Use
  Company Number: DK-ASTRAZENECA-2009SE19557

PATIENT

DRUGS (1)
  1. NAROPIN [Suspect]
     Route: 065

REACTIONS (2)
  - HYPOTENSION [None]
  - SEPSIS [None]
